FAERS Safety Report 4302986-2 (Version None)
Quarter: 2004Q1

REPORT INFORMATION
  Report Type: 
  Country: None (occurrence: None)
  Receive Date: 20040224
  Receipt Date: 20031201
  Transmission Date: 20041129
  Serious: Yes (Other)
  Sender: FDA-Public Use
  Company Number: FR-GLAXOSMITHKLINE-B0316504A

PATIENT
  Age: 11 Year
  Sex: Male

DRUGS (6)
  1. ZELITREX [Suspect]
     Indication: HERPES ZOSTER OPHTHALMIC
     Dosage: 2G PER DAY
     Route: 048
  2. CORTANCYL [Concomitant]
  3. BACTRIM [Concomitant]
  4. SPECIAFOLDINE [Concomitant]
  5. FLUDROCORTISONE ACETATE [Concomitant]
  6. DIFFU K [Concomitant]

REACTIONS (8)
  - ABNORMAL BEHAVIOUR [None]
  - AMNESIA [None]
  - CONFUSIONAL STATE [None]
  - DECREASED INTEREST [None]
  - DISORIENTATION [None]
  - HALLUCINATION [None]
  - MEDICATION ERROR [None]
  - SPEECH DISORDER [None]
